FAERS Safety Report 13185230 (Version 1)
Quarter: 2017Q1

REPORT INFORMATION
  Report Type: Spontaneous
  Country: JP (occurrence: JP)
  Receive Date: 20170203
  Receipt Date: 20170203
  Transmission Date: 20170428
  Serious: Yes (Life-Threatening, Other)
  Sender: FDA-Public Use
  Company Number: PHHY2017JP002682

PATIENT
  Age: 53 Year
  Sex: Female

DRUGS (1)
  1. NEORAL [Suspect]
     Active Substance: CYCLOSPORINE
     Indication: PSORIASIS
     Dosage: 2.5 MG/KG, UNK (2.0 TO 2.5 MG/KG)
     Route: 048

REACTIONS (6)
  - Squamous cell carcinoma [Unknown]
  - Skin plaque [Unknown]
  - Erythema [Unknown]
  - Acantholysis [Unknown]
  - Skin mass [Unknown]
  - Hyperchromasia [Unknown]
